FAERS Safety Report 5809002-1 (Version None)
Quarter: 2008Q3

REPORT INFORMATION
  Report Type: 
  Country: None (occurrence: None)
  Receive Date: 20080714
  Receipt Date: 20080703
  Transmission Date: 20090109
  Serious: Yes (Other)
  Sender: FDA-Public Use
  Company Number: US-JNJFOC-20080701806

PATIENT
  Sex: Female

DRUGS (4)
  1. MONISTAT 1 UNSPECIFIED [Suspect]
     Route: 067
  2. MONISTAT 1 UNSPECIFIED [Suspect]
     Indication: FUNGAL INFECTION
     Route: 067
  3. MONISTAT 1 UNSPECIFIED [Suspect]
     Route: 061
  4. MONISTAT 1 UNSPECIFIED [Suspect]
     Route: 061

REACTIONS (3)
  - SUICIDAL IDEATION [None]
  - VULVOVAGINAL BURNING SENSATION [None]
  - VULVOVAGINAL PRURITUS [None]
